FAERS Safety Report 9835829 (Version 1)
Quarter: 2014Q1

REPORT INFORMATION
  Report Type: Spontaneous
  Country: US (occurrence: US)
  Receive Date: 20140122
  Receipt Date: 20140122
  Transmission Date: 20141002
  Serious: No
  Sender: FDA-Public Use
  Company Number: US-GILEAD-2011-0045121

PATIENT
  Sex: Female

DRUGS (3)
  1. COMPLERA [Suspect]
     Indication: HIV INFECTION
     Dosage: UNK
  2. TRUVADA [Concomitant]
     Dosage: UNK
  3. EDURANT [Concomitant]
     Indication: HIV INFECTION
     Dosage: UNK

REACTIONS (1)
  - Pruritus [Unknown]
